FAERS Safety Report 6291632-7 (Version None)
Quarter: 2009Q3

REPORT INFORMATION
  Report Type: 
  Country: None (occurrence: None)
  Receive Date: 20090730
  Receipt Date: 20090730
  Transmission Date: 20100115
  Serious: No
  Sender: FDA-Public Use
  Company Number: None

PATIENT
  Age: 47 Year
  Sex: Female
  Weight: 54.4316 kg

DRUGS (1)
  1. NAPROSYN [Suspect]
     Indication: PAIN
     Dosage: 500 MG, BID, PO
     Route: 048
     Dates: start: 20060724, end: 20070623

REACTIONS (1)
  - ALOPECIA [None]
